FAERS Safety Report 6634457-2 (Version None)
Quarter: 2010Q1

REPORT INFORMATION
  Report Type: 
  Country: None (occurrence: None)
  Receive Date: 20100315
  Receipt Date: 20100302
  Transmission Date: 20100710
  Serious: Yes (Other)
  Sender: FDA-Public Use
  Company Number: US-PFIZER INC-2009170043

PATIENT
  Sex: Male
  Weight: 80 kg

DRUGS (13)
  1. TIKOSYN [Suspect]
     Indication: ATRIAL FIBRILLATION
     Dosage: 500 MG, 2X/DAY
     Dates: start: 20040201
  2. TIKOSYN [Suspect]
     Indication: ATRIAL FLUTTER
  3. WARFARIN SODIUM [Concomitant]
     Dosage: UNK
  4. ACETYLSALICYLIC ACID [Concomitant]
     Indication: ATRIAL FIBRILLATION
     Dosage: 81 MG, 1X/DAY
     Route: 048
  5. LEXAPRO [Concomitant]
     Indication: DEPRESSION
     Dosage: 10 MG, 1X/DAY
  6. LEXAPRO [Concomitant]
     Indication: ANXIETY
  7. AVODART [Concomitant]
     Indication: PROSTATOMEGALY
     Dosage: 0.5 MG, 1X/DAY
  8. ARICEPT [Concomitant]
     Dosage: UNK
  9. ZOCOR [Concomitant]
     Dosage: UNK
  10. MULTI-VITAMINS [Concomitant]
     Dosage: UNK
  11. SIMVASTATIN [Concomitant]
  12. VITAMIN E [Concomitant]
     Dosage: UNK
  13. VITAMIN C [Concomitant]
     Dosage: UNK

REACTIONS (10)
  - ATRIAL FIBRILLATION [None]
  - DEMENTIA WITH LEWY BODIES [None]
  - DRUG DOSE OMISSION [None]
  - DRUG TOXICITY [None]
  - FALL [None]
  - FATIGUE [None]
  - GAIT DISTURBANCE [None]
  - NEUROPATHY PERIPHERAL [None]
  - URINARY TRACT INFECTION [None]
  - WEIGHT DECREASED [None]
